FAERS Safety Report 18968534 (Version 2)
Quarter: 2022Q2

REPORT INFORMATION
  Report Type: Spontaneous
  Country: CA (occurrence: CA)
  Receive Date: 20210304
  Receipt Date: 20220525
  Transmission Date: 20220721
  Serious: Yes (Disabling, Other)
  Sender: FDA-Public Use
  Company Number: CA-ACCORD-218664

PATIENT
  Age: 5 Year
  Sex: Male

DRUGS (2)
  1. METHOTREXATE [Suspect]
     Active Substance: METHOTREXATE
     Indication: Dermatomyositis
  2. PREDNISONE [Concomitant]
     Active Substance: PREDNISONE
     Indication: Dermatomyositis
     Dosage: ON TAPERING DOSE (HE WAS ABLE TO DISCONTINUE HIS PREDNISONE 8 MONTHS AFTER STARTING)

REACTIONS (2)
  - Medial tibial stress syndrome [Recovered/Resolved]
  - Off label use [Unknown]
